FAERS Safety Report 13483543 (Version 1)
Quarter: 2017Q2

REPORT INFORMATION
  Report Type: Spontaneous
  Country: US (occurrence: US)
  Receive Date: 20170426
  Receipt Date: 20170426
  Transmission Date: 20170830
  Serious: Yes (Other)
  Sender: FDA-Public Use
  Company Number: US-PROCTER_AND_GAMBLE-GS16045847

PATIENT
  Age: 54 Year
  Sex: Female
  Weight: 61.22 kg

DRUGS (4)
  1. SECRET CLINICAL STRENGTH ADVANCED POWDER PROTECTION [Suspect]
     Active Substance: ALUMINUM ZIRCONIUM TRICHLOROHYDREX GLY
     Dosage: UNK
     Route: 061
     Dates: end: 2016
  2. ESTRACE [Concomitant]
     Active Substance: ESTRADIOL
  3. SECRETAPDO+BSPRAY [Suspect]
     Active Substance: ALUMINUM ZIRCONIUM TRICHLOROHYDREX GLY
     Dosage: UNK
     Route: 061
     Dates: end: 2016
  4. LEXAPRO [Concomitant]
     Active Substance: ESCITALOPRAM OXALATE
     Indication: DEPRESSION
     Dosage: 1 UNK, 1 /DAY

REACTIONS (21)
  - Intraductal proliferative breast lesion [Not Recovered/Not Resolved]
  - Pruritus [Recovered/Resolved]
  - Skin mass [Recovered/Resolved]
  - Application site pain [None]
  - Skin burning sensation [Recovered/Resolved]
  - Rash erythematous [Recovered/Resolved]
  - Mammogram abnormal [Unknown]
  - Fatigue [Recovered/Resolved]
  - Breast calcifications [None]
  - Macule [Recovered/Resolved]
  - Therapy change [None]
  - Axillary pain [Recovered/Resolved]
  - Application site rash [None]
  - Fibrocystic breast disease [None]
  - Application site erythema [None]
  - Application site pruritus [None]
  - Chemical burn of skin [Recovered/Resolved]
  - Skin irritation [Recovered/Resolved]
  - Ultrasound breast abnormal [Unknown]
  - Rash [Recovered/Resolved]
  - Biopsy breast abnormal [Unknown]

NARRATIVE: CASE EVENT DATE: 2016
